FAERS Safety Report 8859532 (Version 1)
Quarter: 2012Q4

REPORT INFORMATION
  Report Type: Report from Study
  Country: TH (occurrence: TH)
  Receive Date: 20121024
  Receipt Date: 20121024
  Transmission Date: 20130627
  Serious: Yes (Other)
  Sender: FDA-Public Use
  Company Number: TH-ROCHE-1146637

PATIENT

DRUGS (2)
  1. RANIBIZUMAB [Suspect]
     Indication: AGE-RELATED MACULAR DEGENERATION
     Route: 065
  2. VERTEPORFIN [Suspect]
     Indication: AGE-RELATED MACULAR DEGENERATION
     Route: 065

REACTIONS (1)
  - Back pain [Unknown]
